FAERS Safety Report 13650184 (Version 2)
Quarter: 2017Q3

REPORT INFORMATION
  Report Type: Report from Study
  Country: DE (occurrence: DE)
  Receive Date: 20170614
  Receipt Date: 20170718
  Transmission Date: 20171127
  Serious: Yes (Death, Other)
  Sender: FDA-Public Use
  Company Number: DE-ROCHE-1945275

PATIENT
  Sex: Female
  Weight: 77 kg

DRUGS (4)
  1. MITOMYCIN C [Suspect]
     Active Substance: MITOMYCIN
     Dosage: ON DAY 1 OF A 21-DAY CYCLE WITH 75% DOSE REDUCTION
     Route: 040
  2. CAPECITABINE. [Suspect]
     Active Substance: CAPECITABINE
     Dosage: 75 % DOSE REDUCTION
     Route: 048
  3. MITOMYCIN C [Suspect]
     Active Substance: MITOMYCIN
     Indication: BREAST CANCER METASTATIC
     Dosage: ON DAY 1 OF A 21-DAY CYCLE
     Route: 040
  4. CAPECITABINE. [Suspect]
     Active Substance: CAPECITABINE
     Indication: BREAST CANCER METASTATIC
     Dosage: ON DAYS 1 RO 14 OF A 21-DAY CYCLE
     Route: 048

REACTIONS (1)
  - Dyspnoea [Unknown]
